FAERS Safety Report 5007775-1 (Version None)
Quarter: 2006Q2

REPORT INFORMATION
  Report Type: 
  Country: None (occurrence: None)
  Receive Date: 20060522
  Receipt Date: 20060515
  Transmission Date: 20061013
  Serious: Yes (Hospitalization, Congenital Anomaly)
  Sender: FDA-Public Use
  Company Number: US-GLAXOSMITHKLINE-A0606369A

PATIENT
  Sex: Male
  Weight: 3.6 kg

DRUGS (1)
  1. PAXIL [Suspect]

REACTIONS (13)
  - ATRIAL SEPTAL DEFECT [None]
  - BUNDLE BRANCH BLOCK RIGHT [None]
  - CARDIAC MURMUR [None]
  - CYANOSIS [None]
  - DRUG EXPOSURE DURING PREGNANCY [None]
  - FALLOT'S TETRALOGY [None]
  - HEART DISEASE CONGENITAL [None]
  - PLEURAL EFFUSION [None]
  - PULMONARY VALVE INCOMPETENCE [None]
  - PULMONARY VALVE STENOSIS [None]
  - TAKAYASU'S ARTERITIS [None]
  - VENTRICULAR HYPERTROPHY [None]
  - VENTRICULAR SEPTAL DEFECT [None]
